FAERS Safety Report 5716427-1 (Version None)
Quarter: 2008Q2

REPORT INFORMATION
  Report Type: 
  Country: None (occurrence: None)
  Receive Date: 20080424
  Receipt Date: 20080415
  Transmission Date: 20081010
  Serious: Yes (Other)
  Sender: FDA-Public Use
  Company Number: PHNU2008DE01561

PATIENT
  Age: 62 Year
  Sex: Male

DRUGS (7)
  1. LIORESAL [Suspect]
     Dosage: 75 MG/DAY
     Route: 048
     Dates: start: 20060101
  2. TETRAZEPAM [Concomitant]
     Dosage: 50 MG/DAY
     Route: 048
  3. TRAMADOL HCL [Concomitant]
     Dosage: 60 MG, BID
     Route: 048
  4. MIRTAZAPINE [Concomitant]
  5. LYRICA [Concomitant]
     Dosage: 150 MG, BID
     Route: 048
  6. LAMOTRIGINE [Concomitant]
     Dosage: 150 MG/DAY
     Route: 048
  7. LORAZEPAM [Concomitant]
     Dosage: 1 MG AS NEEDED
     Route: 048

REACTIONS (7)
  - DYSKINESIA [None]
  - HYPERTONIA [None]
  - MEMORY IMPAIRMENT [None]
  - MENTAL IMPAIRMENT [None]
  - SPEECH DISORDER [None]
  - SUICIDAL IDEATION [None]
  - SUICIDE ATTEMPT [None]
